FAERS Safety Report 14142344 (Version 1)
Quarter: 2017Q4

REPORT INFORMATION
  Report Type: Spontaneous
  Country: AU (occurrence: AU)
  Receive Date: 20171030
  Receipt Date: 20171030
  Transmission Date: 20180321
  Serious: Yes (Other)
  Sender: FDA-Public Use
  Company Number: PHHY2017AU154303

PATIENT
  Sex: Female

DRUGS (1)
  1. LETROZOLE. [Suspect]
     Active Substance: LETROZOLE
     Indication: PRODUCT USED FOR UNKNOWN INDICATION
     Dosage: 600 MG, QD
     Route: 065
     Dates: start: 20170920

REACTIONS (6)
  - Ear infection [Unknown]
  - Headache [Recovering/Resolving]
  - Musculoskeletal chest pain [Unknown]
  - Breast pain [Unknown]
  - Metastases to lung [Unknown]
  - Vertigo [Recovering/Resolving]
